FAERS Safety Report 16693243 (Version 1)
Quarter: 2019Q3

REPORT INFORMATION
  Report Type: Spontaneous
  Country: US (occurrence: US)
  Receive Date: 20190812
  Receipt Date: 20190812
  Transmission Date: 20191004
  Serious: Yes (Other)
  Sender: FDA-Public Use
  Company Number: US-SA-2019SA209339

PATIENT
  Age: 53 Year
  Sex: Male

DRUGS (6)
  1. SPIRONOLACTONE. [Concomitant]
     Active Substance: SPIRONOLACTONE
  2. ROSUVASTATIN. [Concomitant]
     Active Substance: ROSUVASTATIN
  3. DOCETAXEL. [Suspect]
     Active Substance: DOCETAXEL
     Indication: MUCOEPIDERMOID CARCINOMA
     Dosage: 30 MG/M2, WEEKLY DOSE
  4. ONDANSETRON [Concomitant]
     Active Substance: ONDANSETRON
  5. LORAZEPAM. [Concomitant]
     Active Substance: LORAZEPAM
  6. NIVOLUMAB [Suspect]
     Active Substance: NIVOLUMAB
     Indication: MUCOEPIDERMOID CARCINOMA
     Dosage: 240 MG, QCY

REACTIONS (9)
  - Rash erythematous [Recovered/Resolved]
  - Actinic elastosis [Recovered/Resolved]
  - Eyelid irritation [Recovered/Resolved]
  - Burning sensation [Recovered/Resolved]
  - Pruritus [Recovered/Resolved]
  - Periorbital disorder [Recovered/Resolved]
  - Dermatitis [Recovered/Resolved]
  - Parakeratosis [Recovered/Resolved]
  - Condition aggravated [Unknown]
